FAERS Safety Report 9117742 (Version 1)
Quarter: 2013Q1

REPORT INFORMATION
  Report Type: Spontaneous
  Country: US (occurrence: US)
  Receive Date: 20130128
  Receipt Date: 20130128
  Transmission Date: 20140127
  Serious: No
  Sender: FDA-Public Use
  Company Number: US-009507513-1301USA011180

PATIENT
  Age: 57 Year
  Sex: Male
  Weight: 96 kg

DRUGS (7)
  1. VICTRELIS [Suspect]
     Dosage: 4 DF, TID, EVERY 7-9 HOURS
     Route: 048
  2. PEGASYS [Suspect]
  3. RIBAPAK [Suspect]
     Dosage: 800/DAYUNK
  4. ZOLOFT [Concomitant]
  5. NEURONTIN [Concomitant]
  6. VITAMINS (UNSPECIFIED) [Concomitant]
  7. LOSARTAN POTASSIUM [Concomitant]

REACTIONS (2)
  - Malaise [Unknown]
  - Chills [Unknown]
